FAERS Safety Report 9709796 (Version 2)
Quarter: 2013Q4

REPORT INFORMATION
  Report Type: Spontaneous
  Country: US (occurrence: US)
  Receive Date: 20131126
  Receipt Date: 20131205
  Transmission Date: 20140711
  Serious: No
  Sender: FDA-Public Use
  Company Number: US-PFIZER INC-2013336336

PATIENT
  Age: 54 Year
  Sex: Female
  Weight: 65.76 kg

DRUGS (2)
  1. NICOTROL INHALER [Suspect]
     Indication: SMOKING CESSATION THERAPY
     Dosage: UNK
     Dates: start: 20131113, end: 20131118
  2. ZYBAN [Concomitant]
     Indication: SMOKING CESSATION THERAPY
     Dosage: HALF A TABLET DAILY

REACTIONS (2)
  - Drug ineffective [Unknown]
  - Product quality issue [Unknown]
